FAERS Safety Report 8943324 (Version 1)
Quarter: 2012Q4

REPORT INFORMATION
  Report Type: Spontaneous
  Country: PL (occurrence: None)
  Receive Date: 20121123
  Receipt Date: 20121123
  Transmission Date: 20130627
  Serious: Yes (Other)
  Sender: FDA-Public Use
  Company Number: PL-INDICUS PHARMA-000038

PATIENT
  Age: 70 Year
  Sex: Male

DRUGS (1)
  1. METFORMIN HYDROCHLORIDE [Suspect]
     Indication: TYPE 2 DIABETES MELLITUS
     Dosage: 3.00 tunes oer-1.0Days

REACTIONS (6)
  - Gastrointestinal disorder [None]
  - Nausea [None]
  - Diarrhoea [None]
  - Abdominal pain [None]
  - Pain in extremity [None]
  - Hyperglycaemia [None]
